FAERS Safety Report 13472839 (Version 1)
Quarter: 2017Q2

REPORT INFORMATION
  Report Type: Spontaneous
  Country: BR (occurrence: BR)
  Receive Date: 20170424
  Receipt Date: 20170424
  Transmission Date: 20170830
  Serious: Yes (Other)
  Sender: FDA-Public Use
  Company Number: BR-PFIZER INC-2017174566

PATIENT
  Age: 49 Year
  Sex: Female

DRUGS (4)
  1. FRONTAL [Concomitant]
     Active Substance: ALPRAZOLAM
     Indication: NERVOUS SYSTEM DISORDER
     Dosage: 2 MG, 2X/DAY (1 TABLET IN THE MORNING AND 1 AT NIGHT)
     Dates: start: 2013
  2. LYRICA [Suspect]
     Active Substance: PREGABALIN
     Dosage: 150 MG, UNK
  3. LYRICA [Suspect]
     Active Substance: PREGABALIN
     Indication: PAIN
     Dosage: 75 MG, UNK
     Dates: start: 2012
  4. LYRICA [Suspect]
     Active Substance: PREGABALIN
     Dosage: 75 MG, UNK

REACTIONS (4)
  - Rheumatoid arthritis [Unknown]
  - Depression [Recovered/Resolved]
  - Balance disorder [Unknown]
  - Product use issue [Unknown]
